FAERS Safety Report 5222902-9 (Version None)
Quarter: 2007Q1

REPORT INFORMATION
  Report Type: 
  Country: None (occurrence: None)
  Receive Date: 20070123
  Receipt Date: 20070118
  Transmission Date: 20070707
  Serious: Yes (Hospitalization)
  Sender: FDA-Public Use
  Company Number: SEWYE256119JAN07

PATIENT
  Age: 22 Year
  Sex: Female

DRUGS (1)
  1. PIPERACILLIN AND TAZOBACTAM [Suspect]
     Dates: end: 20060812

REACTIONS (4)
  - CRANIAL NERVE DISORDER [None]
  - DIZZINESS [None]
  - FATIGUE [None]
  - PYREXIA [None]
